FAERS Safety Report 8398933-7 (Version None)
Quarter: 2012Q2

REPORT INFORMATION
  Report Type: 
  Country: None (occurrence: None)
  Receive Date: 20120531
  Receipt Date: 20120522
  Transmission Date: 20120825
  Serious: Yes (Hospitalization, Other)
  Sender: FDA-Public Use
  Company Number: US-ASTRAZENECA-2012SE18197

PATIENT
  Age: 62 Year
  Sex: Female
  Weight: 87.1 kg

DRUGS (21)
  1. LISINOPRIL [Suspect]
     Route: 048
     Dates: start: 20111121, end: 20120101
  2. BENADRYL [Concomitant]
  3. POTASSIUM GLUCONATE TAB [Concomitant]
  4. LIBRAX [Concomitant]
  5. NEURONTIN [Concomitant]
  6. CRESTOR [Suspect]
     Route: 048
     Dates: start: 20110916
  7. ASPIRIN [Concomitant]
  8. KETOROLAC TROMETHAMINE [Concomitant]
  9. MULTI-VITAMIN [Concomitant]
  10. CRESTOR [Suspect]
     Route: 048
  11. LASIX [Concomitant]
     Dosage: PRN
     Route: 048
     Dates: start: 20110809, end: 20120101
  12. LISINOPRIL [Suspect]
     Route: 048
  13. NOVOLOG [Concomitant]
     Dosage: 4 UNITS EVERY DAY
     Route: 058
  14. FISH OIL [Concomitant]
  15. ANOTHER CHOLESTEROL MEDICINE [Concomitant]
  16. BENTYL [Concomitant]
  17. HUMULIN R [Concomitant]
  18. ALLOPURINOL [Concomitant]
  19. PLAVIX [Concomitant]
  20. TYLENOL [Concomitant]
     Dosage: 325 MG EVERY FOUR HOURS AS NEEDED
     Route: 048
  21. COREG [Concomitant]

REACTIONS (27)
  - BLOOD GLUCOSE INCREASED [None]
  - SLEEP APNOEA SYNDROME [None]
  - DYSLIPIDAEMIA [None]
  - ANXIETY DISORDER [None]
  - ANGINA UNSTABLE [None]
  - CAROTID ARTERY DISEASE [None]
  - DIARRHOEA [None]
  - PALPITATIONS [None]
  - CORONARY ARTERY OCCLUSION [None]
  - DYSPNOEA [None]
  - OBESITY [None]
  - GOUT [None]
  - NON-CARDIAC CHEST PAIN [None]
  - MALAISE [None]
  - ARTERIOSCLEROSIS CORONARY ARTERY [None]
  - HYPERLIPIDAEMIA [None]
  - ASTHENIA [None]
  - INTENTIONAL DRUG MISUSE [None]
  - HYPERTENSION [None]
  - GASTROINTESTINAL SOUNDS ABNORMAL [None]
  - HYPOTENSION [None]
  - PAIN [None]
  - TYPE 2 DIABETES MELLITUS [None]
  - CARDIAC MURMUR [None]
  - DIZZINESS [None]
  - RENAL FAILURE [None]
  - DYSPEPSIA [None]
